FAERS Safety Report 6732020-6 (Version None)
Quarter: 2010Q2

REPORT INFORMATION
  Report Type: 
  Country: None (occurrence: None)
  Receive Date: 20100519
  Receipt Date: 20100517
  Transmission Date: 20101027
  Serious: Yes (Death)
  Sender: FDA-Public Use
  Company Number: PHHY2010MX25099

PATIENT
  Sex: Female

DRUGS (1)
  1. ZOMETA [Suspect]
     Indication: BONE NEOPLASM MALIGNANT
     Dosage: 4 MG/5 ML, PER MONTH
     Dates: start: 20060701

REACTIONS (5)
  - ELECTROLYTE IMBALANCE [None]
  - MALIGNANT NEOPLASM PROGRESSION [None]
  - ORGAN FAILURE [None]
  - RENAL FAILURE [None]
  - TREATMENT NONCOMPLIANCE [None]
